FAERS Safety Report 7010173-2 (Version None)
Quarter: 2010Q3

REPORT INFORMATION
  Report Type: 
  Country: None (occurrence: None)
  Receive Date: 20100923
  Receipt Date: 20100914
  Transmission Date: 20110219
  Serious: Yes (Other)
  Sender: FDA-Public Use
  Company Number: US-PFIZER INC-2010117012

PATIENT
  Sex: Female
  Weight: 83.9 kg

DRUGS (11)
  1. CHANTIX [Suspect]
     Indication: SMOKING CESSATION THERAPY
     Dosage: 0.5 MG, 2X/DAY
     Route: 048
     Dates: start: 20100909
  2. LISINOPRIL [Concomitant]
     Indication: HYPERTENSION
     Dosage: 20 MG, UNK
  3. METFORMIN [Concomitant]
     Indication: DIABETES MELLITUS
     Dosage: UNK
  4. ALPRAZOLAM [Concomitant]
     Dosage: 1 MG, UNK
  5. NEURONTIN [Concomitant]
     Dosage: 300 MG, 3X/DAY
  6. ALBUTEROL [Concomitant]
     Dosage: UNK
  7. IPRATROPIUM [Concomitant]
     Dosage: UNK
  8. ADVAIR DISKUS 100/50 [Concomitant]
     Dosage: 250/50 MG, UNK
  9. SPIRIVA [Concomitant]
     Dosage: UNK, DAILY
  10. LORCET-HD [Concomitant]
     Dosage: 10 MG, 2X/DAY
  11. PRAVASTATIN [Concomitant]
     Dosage: 40 MG, UNK

REACTIONS (1)
  - NERVOUSNESS [None]
